FAERS Safety Report 7704678-6 (Version None)
Quarter: 2011Q3

REPORT INFORMATION
  Report Type: 
  Country: None (occurrence: None)
  Receive Date: 20110823
  Receipt Date: 20110815
  Transmission Date: 20111222
  Serious: No
  Sender: FDA-Public Use
  Company Number: US-NOVOPROD-333760

PATIENT
  Sex: Male
  Weight: 104 kg

DRUGS (1)
  1. LIRAGLUTIDE FLEXPEN [Suspect]
     Indication: OBESITY
     Dosage: UNK
     Route: 058
     Dates: end: 20110806

REACTIONS (1)
  - PANCREATITIS [None]
